FAERS Safety Report 7465449-1 (Version None)
Quarter: 2011Q2

REPORT INFORMATION
  Report Type: 
  Country: None (occurrence: None)
  Receive Date: 20110509
  Receipt Date: 20110427
  Transmission Date: 20111010
  Serious: Yes (Other)
  Sender: FDA-Public Use
  Company Number: US-ROCHE-747602

PATIENT
  Sex: Female
  Weight: 70.3 kg

DRUGS (4)
  1. AMNESTEEM [Suspect]
     Indication: ACNE
     Route: 065
     Dates: start: 20040101
  2. ACCUTANE [Suspect]
     Route: 065
     Dates: start: 20040401, end: 20040901
  3. CONTRACEPTIVES [Concomitant]
     Route: 048
  4. ACCUTANE [Suspect]
     Indication: ACNE
     Route: 065
     Dates: start: 20010901, end: 20020201

REACTIONS (7)
  - INFLAMMATORY BOWEL DISEASE [None]
  - SOMNOLENCE [None]
  - DEPRESSION [None]
  - GASTROINTESTINAL INJURY [None]
  - ANXIETY [None]
  - HAEMORRHOIDS [None]
  - COLITIS ULCERATIVE [None]
